FAERS Safety Report 24527684 (Version 1)
Quarter: 2024Q4

REPORT INFORMATION
  Report Type: Spontaneous
  Country: BG (occurrence: BG)
  Receive Date: 20241021
  Receipt Date: 20241021
  Transmission Date: 20250114
  Serious: Yes (Death, Other)
  Sender: Kenvue
  Company Number: None

PATIENT

DRUGS (62)
  1. ACETAMINOPHEN [Suspect]
     Active Substance: ACETAMINOPHEN
     Indication: Product used for unknown indication
     Dosage: 10 MG/ML
     Route: 065
     Dates: start: 2020
  2. ACETAMINOPHEN [Suspect]
     Active Substance: ACETAMINOPHEN
     Dosage: 10 MG/ML
     Route: 065
  3. NIFUROXAZIDE\PHTHALYLSULFACETAMIDE [Suspect]
     Active Substance: NIFUROXAZIDE\PHTHALYLSULFACETAMIDE
     Indication: Product used for unknown indication
     Dosage: 250 MG * 10 - 2X2 CAPS
     Route: 065
     Dates: start: 2020
  4. NIFUROXAZIDE\PHTHALYLSULFACETAMIDE [Suspect]
     Active Substance: NIFUROXAZIDE\PHTHALYLSULFACETAMIDE
     Dosage: 250 MG  10 - 2X2 CAPS
     Route: 065
  5. CALCIUM GLUCONATE [Suspect]
     Active Substance: CALCIUM GLUCONATE
     Indication: Product used for unknown indication
     Dosage: 8.94 MG/ML - 10 ML - 2X1 AMP
     Route: 065
     Dates: start: 2020
  6. CALCIUM GLUCONATE [Suspect]
     Active Substance: CALCIUM GLUCONATE
     Dosage: 8.94 MG/ML - 10 ML - 2X1 AMP
     Route: 065
  7. NADROPARIN CALCIUM [Suspect]
     Active Substance: NADROPARIN CALCIUM
     Indication: Product used for unknown indication
     Dosage: 1 VIAL MG/ML AS PRESCRIBED
     Route: 065
  8. NADROPARIN CALCIUM [Suspect]
     Active Substance: NADROPARIN CALCIUM
     Dosage: 1 VIAL MG/ML AS PRESCRIBED
     Route: 065
     Dates: start: 2020
  9. MEROPENEM [Suspect]
     Active Substance: MEROPENEM
     Indication: Product used for unknown indication
     Dosage: 3X1.0
     Route: 065
  10. CITICOLINE [Suspect]
     Active Substance: CITICOLINE
     Indication: Product used for unknown indication
     Dosage: 1000 MG 4 ML 2X1 AMP
     Route: 065
  11. CITICOLINE [Suspect]
     Active Substance: CITICOLINE
     Dosage: 1000 MG 4 ML 2X1 AMP
     Route: 065
     Dates: start: 2020
  12. SODIUM CHLORIDE [Suspect]
     Active Substance: SODIUM CHLORIDE
     Indication: Product used for unknown indication
     Dosage: 100 ML ECO-BOTTLE BY PRESCRIPTION
     Route: 065
  13. SODIUM CHLORIDE [Suspect]
     Active Substance: SODIUM CHLORIDE
     Dosage: 100 ML ECO-BOTTLE BY PRESCRIPTION
     Route: 065
     Dates: start: 2020
  14. TOCILIZUMAB [Suspect]
     Active Substance: TOCILIZUMAB
     Indication: COVID-19 pneumonia
     Dosage: 400 MG/20 ML
     Route: 065
     Dates: start: 2020
  15. TOCILIZUMAB [Suspect]
     Active Substance: TOCILIZUMAB
     Dosage: 200 MG/20ML
     Route: 065
     Dates: start: 20200101
  16. CLONIDINE HYDROCHLORIDE [Suspect]
     Active Substance: CLONIDINE HYDROCHLORIDE
     Indication: Product used for unknown indication
     Dosage: 0.15 MG/ML - AS PRESCRIBED
     Route: 065
  17. CLONIDINE HYDROCHLORIDE [Suspect]
     Active Substance: CLONIDINE HYDROCHLORIDE
     Dosage: 0.15 MG/ML - AS PRESCRIBED
     Route: 065
     Dates: start: 2020
  18. ALBUMIN HUMAN [Suspect]
     Active Substance: ALBUMIN HUMAN
     Indication: Product used for unknown indication
     Dosage: 10 PERCENT
     Route: 065
     Dates: start: 2020
  19. ALBUMIN HUMAN [Suspect]
     Active Substance: ALBUMIN HUMAN
     Dosage: 10 PERCENT
     Route: 065
  20. CHLOROQUINE PHOSPHATE [Suspect]
     Active Substance: CHLOROQUINE PHOSPHATE
     Indication: Product used for unknown indication
     Dosage: 2X1 TABLETS
     Route: 065
  21. CHLOROQUINE PHOSPHATE [Suspect]
     Active Substance: CHLOROQUINE PHOSPHATE
     Dosage: 2X1 TABLETS
     Route: 065
     Dates: start: 2020
  22. MIDAZOLAM [Suspect]
     Active Substance: MIDAZOLAM
     Indication: Product used for unknown indication
     Dosage: 5 MG - 5 5 ML - IN PERFUSION
     Route: 065
  23. AZITHROMYCIN [Suspect]
     Active Substance: AZITHROMYCIN
     Indication: Product used for unknown indication
     Route: 065
  24. AZITHROMYCIN [Suspect]
     Active Substance: AZITHROMYCIN
     Dosage: 500 MILLIGRAM
     Route: 065
     Dates: start: 2020
  25. AZITHROMYCIN [Suspect]
     Active Substance: AZITHROMYCIN
     Indication: Product used for unknown indication
     Route: 065
  26. ENOXAPARIN SODIUM [Suspect]
     Active Substance: ENOXAPARIN SODIUM
     Indication: Product used for unknown indication
     Dosage: 60 MG/0.60 ML - X1VIAL
     Route: 065
  27. ENOXAPARIN SODIUM [Suspect]
     Active Substance: ENOXAPARIN SODIUM
     Dosage: 60 MG/0.60 ML - X1VIAL
     Route: 065
     Dates: start: 2020
  28. FLUCONAZOLE [Suspect]
     Active Substance: FLUCONAZOLE
     Indication: Product used for unknown indication
     Dosage: 2 MG/1 ML - 100 ML - X 2 VIAL
     Route: 065
     Dates: start: 2020
  29. FLUCONAZOLE [Suspect]
     Active Substance: FLUCONAZOLE
     Dosage: 2 MG/1 ML - 100 ML - X 2 VIAL
     Route: 065
  30. METOCLOPRAMIDE HYDROCHLORIDE [Suspect]
     Active Substance: METOCLOPRAMIDE HYDROCHLORIDE
     Indication: Product used for unknown indication
     Dosage: 10 MG - 2 ML - AS PRESCRIBED
     Route: 065
     Dates: start: 2020
  31. METOCLOPRAMIDE HYDROCHLORIDE [Suspect]
     Active Substance: METOCLOPRAMIDE HYDROCHLORIDE
     Dosage: 10 MG - 2 ML - AS PRESCRIBED
     Route: 065
  32. VITAMIN C [Suspect]
     Active Substance: ASCORBIC ACID
     Indication: Product used for unknown indication
     Dosage: 10 5 5 ML 2X4 AMP
     Route: 065
  33. VITAMIN C [Suspect]
     Active Substance: ASCORBIC ACID
     Dosage: 10 5 5 ML 2X4 AMP
     Route: 065
     Dates: start: 2020
  34. ESOMEPRAZOLE [Suspect]
     Active Substance: ESOMEPRAZOLE
     Indication: Product used for unknown indication
     Dosage: 2X1 VIAL
     Route: 065
  35. ESOMEPRAZOLE [Suspect]
     Active Substance: ESOMEPRAZOLE
     Dosage: 2X1 VIAL
     Route: 065
     Dates: start: 2020
  36. VANCOCIN [Suspect]
     Active Substance: VANCOMYCIN HYDROCHLORIDE
     Indication: Product used for unknown indication
     Dosage: 2X1.0
     Route: 065
  37. VANCOCIN [Suspect]
     Active Substance: VANCOMYCIN HYDROCHLORIDE
     Dosage: 2X1.0
     Route: 065
     Dates: start: 2020
  38. MEROPENEM [Suspect]
     Active Substance: MEROPENEM
     Indication: Product used for unknown indication
     Dosage: 3X1.0
     Route: 065
  39. MEROPENEM [Suspect]
     Active Substance: MEROPENEM
     Dosage: 3X1.0
     Route: 065
  40. MEROPENEM [Suspect]
     Active Substance: MEROPENEM
     Dosage: 3X1.0
     Route: 065
  41. FAMOTIDINE [Suspect]
     Active Substance: FAMOTIDINE
     Indication: Product used for unknown indication
     Dosage: 2X1 VIAL
     Route: 065
  42. FAMOTIDINE [Suspect]
     Active Substance: FAMOTIDINE
     Dosage: 2X1 VIAL
     Route: 065
     Dates: start: 2020
  43. METHYLPREDNISOLONE [Suspect]
     Active Substance: METHYLPREDNISOLONE
     Indication: Product used for unknown indication
     Dosage: 40 MG / 2 ML
     Route: 065
  44. DEXAMETHASONE [Suspect]
     Active Substance: DEXAMETHASONE
     Indication: Product used for unknown indication
     Dosage: 4 MG/1 ML - 2X2 AMP
     Route: 065
  45. BROMHEXINE [Suspect]
     Active Substance: BROMHEXINE
     Indication: Product used for unknown indication
     Dosage: 4 MG 2 ML - AS PRESCRIBED
     Route: 065
     Dates: start: 2020
  46. BROMHEXINE [Suspect]
     Active Substance: BROMHEXINE
     Dosage: 4 MG 2 ML - AS PRESCRIBED
     Route: 065
  47. CALCIUM CHLORIDE\MAGNESIUM CHLORIDE\POTASSIUM CHLORIDE\SODIUM ACETATE\ [Suspect]
     Active Substance: CALCIUM CHLORIDE\MAGNESIUM CHLORIDE\POTASSIUM CHLORIDE\SODIUM ACETATE\SODIUM CHLORIDE
     Indication: Product used for unknown indication
     Dosage: 500 L - ECO-VIAL - X500 ML
     Route: 065
     Dates: start: 2020
  48. CALCIUM CHLORIDE\MAGNESIUM CHLORIDE\POTASSIUM CHLORIDE\SODIUM ACETATE\ [Suspect]
     Active Substance: CALCIUM CHLORIDE\MAGNESIUM CHLORIDE\POTASSIUM CHLORIDE\SODIUM ACETATE\SODIUM CHLORIDE
     Dosage: 500 L - ECO-VIAL - X500 ML
     Route: 065
  49. SINEQUAN [Suspect]
     Active Substance: DOXEPIN HYDROCHLORIDE
     Indication: Product used for unknown indication
     Dosage: X 2 CAPS
     Route: 065
     Dates: start: 2020
  50. SINEQUAN [Suspect]
     Active Substance: DOXEPIN HYDROCHLORIDE
     Dosage: X 2 CAPS
     Route: 065
  51. METAMIZOLE [Suspect]
     Active Substance: METAMIZOLE
     Indication: Product used for unknown indication
     Dosage: X 2 CAPSAMP. 500MG/ML 2 ML
     Route: 065
  52. METAMIZOLE [Suspect]
     Active Substance: METAMIZOLE
     Dosage: X 2 CAPSAMP. 500MG/ML 2 ML
     Route: 065
     Dates: start: 2020
  53. DIETARY SUPPLEMENT\HERBALS\MILK THISTLE [Suspect]
     Active Substance: MILK THISTLE
     Indication: Product used for unknown indication
     Dosage: 90 MG * 30 PCS. - ACCORDING TO THE SCHEME
     Route: 065
     Dates: start: 2020
  54. DIETARY SUPPLEMENT\HERBALS\MILK THISTLE [Suspect]
     Active Substance: MILK THISTLE
     Dosage: 90 MG * 30 PCS. - ACCORDING TO THE SCHEME
     Route: 065
  55. DEXTROSE [Suspect]
     Active Substance: DEXTROSE MONOHYDRATE
     Indication: Product used for unknown indication
     Dosage: BY PRESCRIPTION
     Route: 042
  56. DEXTROSE [Suspect]
     Active Substance: DEXTROSE MONOHYDRATE
     Dosage: BY PRESCRIPTION
     Route: 042
  57. DEXTROSE [Suspect]
     Active Substance: DEXTROSE MONOHYDRATE
     Dosage: BY PRESCRIPTION
     Route: 042
  58. AMINO ACIDS\DEXTROSE\ELECTROLYTES NOS\SOYBEAN OIL [Suspect]
     Active Substance: AMINO ACIDS\DEXTROSE\ELECTROLYTES NOS\SOYBEAN OIL
     Indication: Product used for unknown indication
     Dosage: 875 ML - 2 PCS
     Route: 065
     Dates: start: 2020
  59. AMINO ACIDS\DEXTROSE\ELECTROLYTES NOS\SOYBEAN OIL [Suspect]
     Active Substance: AMINO ACIDS\DEXTROSE\ELECTROLYTES NOS\SOYBEAN OIL
     Dosage: 875 ML - 2 PCS
     Route: 065
  60. MELOXICAM\PRIDINOL MESILATE [Suspect]
     Active Substance: MELOXICAM\PRIDINOL MESILATE
     Indication: Product used for unknown indication
     Dosage: 5 MG/ML
     Route: 065
  61. FUROSEMIDE [Suspect]
     Active Substance: FUROSEMIDE
     Indication: Product used for unknown indication
     Dosage: 10 MG/ML - AS PRESCRIBED
     Route: 065
     Dates: start: 2020
  62. FUROSEMIDE [Suspect]
     Active Substance: FUROSEMIDE
     Dosage: 10 MG/ML - AS PRESCRIBED
     Route: 065

REACTIONS (12)
  - Tachypnoea [Fatal]
  - Cardiovascular insufficiency [Fatal]
  - Hallucination [Fatal]
  - Hypoxia [Fatal]
  - COVID-19 pneumonia [Fatal]
  - Acute respiratory failure [Fatal]
  - Pulmonary oedema [Fatal]
  - Encephalopathy [Fatal]
  - Brain oedema [Fatal]
  - Embolism [Fatal]
  - Confusional state [Fatal]
  - Hypertension [Fatal]

NARRATIVE: CASE EVENT DATE: 20200101
